FAERS Safety Report 5811436-6 (Version None)
Quarter: 2008Q3

REPORT INFORMATION
  Report Type: 
  Country: None (occurrence: None)
  Receive Date: 20080716
  Receipt Date: 20080709
  Transmission Date: 20090109
  Serious: Yes (Other)
  Sender: FDA-Public Use
  Company Number: DE-ROCHE-575126

PATIENT
  Age: 77 Year
  Sex: Female

DRUGS (2)
  1. BONIVA [Suspect]
     Indication: DRUG USE FOR UNKNOWN INDICATION
     Dosage: RECEIVED AGAIN ON 29 JUNE 2008 FOR THE SECOND TIME.
     Route: 042
  2. NEUROLOGICAL AGENT NOS [Concomitant]

REACTIONS (3)
  - ALOPECIA [None]
  - DEPRESSION [None]
  - SUICIDAL IDEATION [None]
